FAERS Safety Report 26091988 (Version 5)
Quarter: 2025Q4

REPORT INFORMATION
  Report Type: Spontaneous
  Country: US (occurrence: US)
  Receive Date: 20251126
  Receipt Date: 20251218
  Transmission Date: 20260118
  Serious: Yes (Other)
  Sender: BIOGEN
  Company Number: US-BIOGEN-2092300

PATIENT
  Age: 78 Year
  Sex: Female

DRUGS (2)
  1. QALSODY [Suspect]
     Active Substance: TOFERSEN
     Indication: Amyotrophic lateral sclerosis
     Dosage: NDC 64406010901
  2. QALSODY [Suspect]
     Active Substance: TOFERSEN

REACTIONS (5)
  - Cerebral haemorrhage [Unknown]
  - Memory impairment [Recovering/Resolving]
  - Disorientation [Unknown]
  - Confusional state [Recovering/Resolving]
  - Muscle atrophy [Unknown]

NARRATIVE: CASE EVENT DATE: 20240826
